FAERS Safety Report 16804242 (Version 1)
Quarter: 2019Q3

REPORT INFORMATION
  Report Type: Spontaneous
  Country: US (occurrence: US)
  Receive Date: 20190913
  Receipt Date: 20190913
  Transmission Date: 20191005
  Serious: No
  Sender: FDA-Public Use
  Company Number: US-UNITED THERAPEUTICS-UNT-2019-015075

PATIENT
  Sex: Female
  Weight: 73.47 kg

DRUGS (1)
  1. REMODULIN [Suspect]
     Active Substance: TREPROSTINIL
     Indication: PULMONARY ARTERIAL HYPERTENSION
     Dosage: 0.070 ?G/KG, CONTINUING
     Route: 058
     Dates: start: 20150903

REACTIONS (6)
  - Influenza like illness [Unknown]
  - Abdominal discomfort [Recovered/Resolved]
  - Feeling hot [Unknown]
  - Diarrhoea [Unknown]
  - Vomiting [Unknown]
  - Erythema [Unknown]
